FAERS Safety Report 4975634-6 (Version None)
Quarter: 2006Q2

REPORT INFORMATION
  Report Type: 
  Country: None (occurrence: None)
  Receive Date: 20060418
  Receipt Date: 20050616
  Transmission Date: 20061013
  Serious: Yes (Other)
  Sender: FDA-Public Use
  Company Number: US-GILEAD-2005-0008426

PATIENT
  Sex: Male
  Weight: 59.474 kg

DRUGS (8)
  1. VIREAD [Suspect]
     Indication: HIV INFECTION
     Route: 048
     Dates: start: 20020215, end: 20050323
  2. EPIVIR [Concomitant]
     Indication: HIV INFECTION
     Route: 048
     Dates: start: 20020215
  3. KALETRA [Concomitant]
     Indication: HIV INFECTION
     Route: 048
     Dates: start: 20020215
  4. BACTRIM DS [Concomitant]
     Indication: PROPHYLAXIS
     Route: 048
     Dates: start: 20020109
  5. NEURONTIN [Concomitant]
     Indication: NEUROPATHY
     Route: 048
     Dates: start: 20020412
  6. ANDROGEL [Concomitant]
     Indication: HYPOGONADISM
     Route: 061
  7. FELDENE [Concomitant]
     Indication: ARTHRALGIA
     Route: 048
     Dates: start: 20050225, end: 20050323
  8. FLAXSEED OIL [Concomitant]
     Dates: start: 20050101

REACTIONS (8)
  - ARTHRALGIA [None]
  - BALANCE DISORDER [None]
  - BLOOD ALKALINE PHOSPHATASE INCREASED [None]
  - DIFFICULTY IN WALKING [None]
  - GLOMERULAR FILTRATION RATE DECREASED [None]
  - GLYCOSURIA [None]
  - MUSCULAR WEAKNESS [None]
  - PROTEINURIA [None]
